FAERS Safety Report 6217196-1 (Version None)
Quarter: 2009Q2

REPORT INFORMATION
  Report Type: 
  Country: None (occurrence: None)
  Receive Date: 20090608
  Receipt Date: 20090530
  Transmission Date: 20091009
  Serious: Yes (Death, Hospitalization, Other)
  Sender: FDA-Public Use
  Company Number: IT-CELGENEUS-083-21880-09060007

PATIENT
  Age: 41 Year
  Sex: Female

DRUGS (2)
  1. REVLIMID [Suspect]
     Route: 048
  2. DEXAMETHASONE [Concomitant]
     Route: 065

REACTIONS (3)
  - DEATH [None]
  - GRAFT VERSUS HOST DISEASE [None]
  - HAEMATOTOXICITY [None]
